FAERS Safety Report 7302917-7 (Version None)
Quarter: 2011Q1

REPORT INFORMATION
  Report Type: 
  Country: None (occurrence: None)
  Receive Date: 20110218
  Receipt Date: 20110109
  Transmission Date: 20110831
  Serious: Yes (Hospitalization)
  Sender: FDA-Public Use
  Company Number: AR-BIOGENIDEC-2011BI005222

PATIENT
  Age: 29 Year
  Sex: Female

DRUGS (2)
  1. TYSABRI [Suspect]
     Indication: MULTIPLE SCLEROSIS
     Route: 042
     Dates: start: 20071114, end: 20080101
  2. TYSABRI [Suspect]
     Route: 042
     Dates: end: 20101225

REACTIONS (2)
  - MULTIPLE SCLEROSIS RELAPSE [None]
  - JC VIRUS TEST [None]
